FAERS Safety Report 12277680 (Version 2)
Quarter: 2016Q2

REPORT INFORMATION
  Report Type: Spontaneous
  Country: CA (occurrence: CA)
  Receive Date: 20160418
  Receipt Date: 20160421
  Transmission Date: 20160815
  Serious: Yes (Life-Threatening, Hospitalization)
  Sender: FDA-Public Use
  Company Number: CA-JNJFOC-20160412724

PATIENT
  Age: 72 Year
  Sex: Female
  Weight: 86 kg

DRUGS (1)
  1. INVOKANA [Suspect]
     Active Substance: CANAGLIFLOZIN
     Indication: WEIGHT DECREASED
     Route: 048

REACTIONS (9)
  - Blood pressure decreased [Unknown]
  - Loss of consciousness [Unknown]
  - Fatigue [Unknown]
  - Apparent death [Unknown]
  - Seizure [Unknown]
  - Pulse absent [Unknown]
  - Product use issue [Unknown]
  - Off label use [Unknown]
  - Myocardial infarction [Recovered/Resolved]
